FAERS Safety Report 7073670-X (Version None)
Quarter: 2010Q4

REPORT INFORMATION
  Report Type: 
  Country: None (occurrence: None)
  Receive Date: 20101029
  Receipt Date: 20100728
  Transmission Date: 20110411
  Serious: No
  Sender: FDA-Public Use
  Company Number: A0872744A

PATIENT
  Age: 84 Year
  Sex: Male

DRUGS (11)
  1. ADVAIR DISKUS 100/50 [Suspect]
     Indication: CHRONIC OBSTRUCTIVE PULMONARY DISEASE
     Route: 055
     Dates: start: 20090101
  2. SPIRIVA [Concomitant]
  3. PROAIR HFA [Concomitant]
  4. ASPIRIN [Concomitant]
  5. FINASTERIDE [Concomitant]
  6. TERAZOSIN HCL [Concomitant]
  7. ALLOPURINOL [Concomitant]
  8. ATENOLOL [Concomitant]
  9. LOVASTATIN [Concomitant]
  10. CYMBALTA [Concomitant]
  11. GABAPENTIN [Concomitant]

REACTIONS (1)
  - WEIGHT INCREASED [None]
